FAERS Safety Report 12667289 (Version 1)
Quarter: 2016Q3

REPORT INFORMATION
  Report Type: Spontaneous
  Country: US (occurrence: None)
  Receive Date: 20160818
  Receipt Date: 20160818
  Transmission Date: 20161109
  Serious: Yes (Hospitalization)
  Sender: FDA-Public Use
  Company Number: None

PATIENT
  Age: 3 Year
  Sex: Female
  Weight: 10.5 kg

DRUGS (3)
  1. ONCASPAR [Suspect]
     Active Substance: PEGASPARGASE
     Dates: end: 20160724
  2. VINCRISTINE SULFATE. [Suspect]
     Active Substance: VINCRISTINE SULFATE
     Dates: end: 20160804
  3. DEXAMETHASONE. [Suspect]
     Active Substance: DEXAMETHASONE
     Dates: end: 20160809

REACTIONS (20)
  - Pseudomonas test positive [None]
  - Pleural effusion [None]
  - Hypotension [None]
  - Alanine aminotransferase increased [None]
  - Blood blister [None]
  - Agitation [None]
  - Metabolic acidosis [None]
  - Swelling [None]
  - Candida infection [None]
  - Ulcer [None]
  - Aspartate aminotransferase increased [None]
  - Wound [None]
  - Pyrexia [None]
  - Cardiac arrest [None]
  - Rash [None]
  - Erythema [None]
  - Tachycardia [None]
  - Respiratory distress [None]
  - Platelet count decreased [None]
  - Blood glucose decreased [None]

NARRATIVE: CASE EVENT DATE: 20160809
